FAERS Safety Report 25129259 (Version 1)
Quarter: 2025Q1

REPORT INFORMATION
  Report Type: Spontaneous
  Country: US (occurrence: US)
  Receive Date: 20250327
  Receipt Date: 20250327
  Transmission Date: 20250409
  Serious: No
  Sender: PFIZER
  Company Number: US-PFIZER INC-202500059266

PATIENT
  Age: 13 Year
  Sex: Male
  Weight: 43.359 kg

DRUGS (3)
  1. GENOTROPIN [Suspect]
     Active Substance: SOMATROPIN
     Indication: Growth hormone deficiency
     Dates: start: 20250220
  2. SERTRALINE [Concomitant]
     Active Substance: SERTRALINE HYDROCHLORIDE
     Indication: Anxiety
  3. GUANFACINE [Concomitant]
     Active Substance: GUANFACINE
     Indication: Disturbance in attention

REACTIONS (1)
  - Device leakage [Unknown]
